FAERS Safety Report 13109903 (Version 1)
Quarter: 2017Q1

REPORT INFORMATION
  Report Type: Spontaneous
  Country: US (occurrence: US)
  Receive Date: 20170112
  Receipt Date: 20170112
  Transmission Date: 20170428
  Serious: Yes (Hospitalization)
  Sender: FDA-Public Use
  Company Number: US-ROCHE-1101422

PATIENT
  Sex: Female

DRUGS (3)
  1. ACTIVASE [Suspect]
     Active Substance: ALTEPLASE
     Indication: MYOCARDIAL INFARCTION
     Route: 065
     Dates: start: 19940710, end: 19940710
  2. ACTIVASE [Suspect]
     Active Substance: ALTEPLASE
     Indication: CHEST PAIN
  3. ACTIVASE [Suspect]
     Active Substance: ALTEPLASE
     Indication: CARDIAC ARREST

REACTIONS (5)
  - Nausea [Unknown]
  - Hypotension [Unknown]
  - Dyspepsia [Unknown]
  - Anuria [Unknown]
  - Bradycardia [Unknown]
